FAERS Safety Report 11451075 (Version 3)
Quarter: 2016Q2

REPORT INFORMATION
  Report Type: Report from Study
  Country: DE (occurrence: DE)
  Receive Date: 20150903
  Receipt Date: 20160422
  Transmission Date: 20160815
  Serious: Yes (Hospitalization)
  Sender: FDA-Public Use
  Company Number: DE-ROCHE-1629120

PATIENT
  Age: 50 Year
  Sex: Female

DRUGS (5)
  1. ROACTEMRA [Suspect]
     Active Substance: TOCILIZUMAB
     Indication: RHEUMATOID ARTHRITIS
     Route: 058
     Dates: start: 20150619
  2. METOPROLOL. [Concomitant]
     Active Substance: METOPROLOL
     Route: 065
  3. OMEP [Concomitant]
     Active Substance: OMEPRAZOLE
  4. TORASEMIDE [Concomitant]
     Active Substance: TORSEMIDE
  5. CORTISONE [Concomitant]
     Active Substance: CORTISONE\HYDROCORTISONE
     Indication: RHEUMATOID ARTHRITIS
     Route: 065

REACTIONS (8)
  - Wound haemorrhage [Unknown]
  - Dyspnoea [Unknown]
  - Pain [Unknown]
  - Cough [Unknown]
  - Rheumatoid lung [Unknown]
  - Impaired healing [Recovered/Resolved]
  - Rib fracture [Unknown]
  - Bronchitis [Unknown]

NARRATIVE: CASE EVENT DATE: 20150619
